FAERS Safety Report 6905363-0 (Version None)
Quarter: 2010Q3

REPORT INFORMATION
  Report Type: 
  Country: None (occurrence: None)
  Receive Date: 20100804
  Receipt Date: 20100803
  Transmission Date: 20110219
  Serious: Yes (Other)
  Sender: FDA-Public Use
  Company Number: IL-SANOFI-AVENTIS-2010SA042294

PATIENT
  Sex: Female

DRUGS (3)
  1. AMARYL [Suspect]
     Indication: DIABETES MELLITUS
  2. JANUVIA [Concomitant]
  3. METFORMIN HCL [Concomitant]

REACTIONS (1)
  - LEUKAEMIA [None]
